FAERS Safety Report 4672758-8 (Version None)
Quarter: 2005Q2

REPORT INFORMATION
  Report Type: 
  Country: None (occurrence: None)
  Receive Date: 20050523
  Receipt Date: 20050510
  Transmission Date: 20051028
  Serious: Yes (Other)
  Sender: FDA-Public Use
  Company Number: 2005069099

PATIENT
  Sex: Female

DRUGS (2)
  1. BEXTRA [Suspect]
     Indication: BACK PAIN
     Dosage: 40 MG (40 MG, 1 IN 1D), ORAL
     Route: 048
     Dates: start: 20041007, end: 20041009
  2. TENOXICAM (TENOXICAM) [Suspect]
     Indication: BACK PAIN
     Dosage: (1 IN 1 D), ORAL
     Route: 048
     Dates: end: 20041009

REACTIONS (7)
  - ANAPHYLACTIC SHOCK [None]
  - DRUG INEFFECTIVE [None]
  - ERYTHEMA [None]
  - GASTRITIS [None]
  - HEPATIC NECROSIS [None]
  - HEPATITIS [None]
  - MALAISE [None]
